FAERS Safety Report 9238328 (Version 1)
Quarter: 2013Q1

REPORT INFORMATION
  Report Type: Spontaneous
  Country: US (occurrence: None)
  Receive Date: 20121106
  Receipt Date: 20121106
  Transmission Date: 20140127
  Serious: No
  Sender: FDA-Public Use
  Company Number: 1000037247

PATIENT
  Age: 61 Year
  Sex: Female
  Weight: 58 kg

DRUGS (9)
  1. DALIRESP [Suspect]
     Indication: BRONCHITIS CHRONIC
     Route: 048
     Dates: start: 20120710, end: 20120712
  2. SINGULAIR [Suspect]
  3. ADVAIR (SERETIDE) (SERETIDE) [Concomitant]
  4. FLONASE (FLUTICASONE PROPIONATE) (FLUTICASONE PROPIONATE) [Concomitant]
  5. SPIRIVA (TIOTROPIUM BROMIDE) (TIOTROPIUM BROMIDE) [Concomitant]
  6. LISINOPRIL (LISINOPRIL) (LISINOPRIL) [Concomitant]
  7. ZYRTEC (CETIRIZINE HYDROCHLORIDE) (CETIRIZINE HYDROCHLORIDE) [Concomitant]
  8. OMEPRAZOLE (OMEPRAZOLE) (OMEPRAZOLE) [Concomitant]
  9. PREMARIN (ESTROGENS CONJUGATED) (ESTROGENS CONJUGATED) [Concomitant]

REACTIONS (9)
  - Diarrhoea [None]
  - Nervousness [None]
  - Disturbance in attention [None]
  - Muscle spasms [None]
  - Weight decreased [None]
  - Decreased appetite [None]
  - Abdominal distension [None]
  - Nausea [None]
  - Gastrooesophageal reflux disease [None]
